FAERS Safety Report 18855901 (Version 2)
Quarter: 2021Q1

REPORT INFORMATION
  Report Type: Other
  Country: RO (occurrence: RO)
  Receive Date: 20210206
  Receipt Date: 20210209
  Transmission Date: 20210420
  Serious: Yes (Other)
  Sender: FDA-Public Use
  Company Number: RO-ROCHE-2761303

PATIENT
  Sex: Male
  Weight: 105 kg

DRUGS (1)
  1. ROACTEMRA [Suspect]
     Active Substance: TOCILIZUMAB
     Indication: RHEUMATOID ARTHRITIS
     Dosage: IN THE CALF
     Route: 058

REACTIONS (3)
  - Anal abscess [Unknown]
  - Immunodeficiency [Unknown]
  - Weight decreased [Unknown]
